FAERS Safety Report 5408372-6 (Version None)
Quarter: 2007Q3

REPORT INFORMATION
  Report Type: 
  Country: None (occurrence: None)
  Receive Date: 20070806
  Receipt Date: 20070806
  Transmission Date: 20080115
  Serious: Yes (Hospitalization)
  Sender: FDA-Public Use
  Company Number: None

PATIENT
  Age: 82 Year
  Sex: Male

DRUGS (1)
  1. VANCOMYCIN [Suspect]
     Indication: CLOSTRIDIAL INFECTION
     Dosage: 1GM UD IV
     Route: 042
     Dates: start: 20070414, end: 20070514

REACTIONS (1)
  - RASH [None]
